FAERS Safety Report 9827423 (Version 1)
Quarter: 2014Q1

REPORT INFORMATION
  Report Type: Spontaneous
  Country: CA (occurrence: CA)
  Receive Date: 20140117
  Receipt Date: 20140117
  Transmission Date: 20141002
  Serious: Yes (Other)
  Sender: FDA-Public Use
  Company Number: CA-AMGEN-CANSP2014002251

PATIENT
  Age: 78 Year
  Sex: Male

DRUGS (7)
  1. XGEVA [Suspect]
     Indication: PROSTATE CANCER
     Dosage: UNK
     Route: 065
     Dates: start: 20130605
  2. LUBRIDERM                          /01007601/ [Concomitant]
  3. ZOPLICONE [Concomitant]
  4. LUPRON [Concomitant]
  5. CALCIUM [Concomitant]
  6. METFORMIN [Concomitant]
  7. ADVIL                              /00044201/ [Concomitant]

REACTIONS (5)
  - Neoplasm malignant [Recovered/Resolved]
  - Nasal congestion [Recovered/Resolved]
  - Dry mouth [Recovered/Resolved]
  - Secretion discharge [Not Recovered/Not Resolved]
  - Lethargy [Recovered/Resolved]
